FAERS Safety Report 4888985-0 (Version None)
Quarter: 2005Q4

REPORT INFORMATION
  Report Type: 
  Country: None (occurrence: None)
  Receive Date: 20051216
  Receipt Date: 20050725
  Transmission Date: 20060501
  Serious: No
  Sender: FDA-Public Use
  Company Number: USA0507103717

PATIENT
  Age: 39 Year
  Sex: Male
  Weight: 114 kg

DRUGS (1)
  1. CIALIS [Suspect]
     Indication: ERECTILE DYSFUNCTION
     Dosage: 10 MG

REACTIONS (2)
  - DIARRHOEA [None]
  - DRUG INEFFECTIVE [None]
